FAERS Safety Report 25631616 (Version 1)
Quarter: 2025Q3

REPORT INFORMATION
  Report Type: Spontaneous
  Country: US (occurrence: US)
  Receive Date: 20250801
  Receipt Date: 20250801
  Transmission Date: 20251020
  Serious: No
  Sender: AUROBINDO
  Company Number: US-AUROBINDO-AUR-APL-2024-036219

PATIENT
  Sex: Female
  Weight: 127.8 kg

DRUGS (1)
  1. AZITHROMYCIN [Suspect]
     Active Substance: AZITHROMYCIN
     Indication: Pneumonia
     Dosage: UNK, ONCE A DAY
     Route: 042
     Dates: start: 20240714

REACTIONS (2)
  - Vomiting [Unknown]
  - Product administration error [Unknown]

NARRATIVE: CASE EVENT DATE: 20240715
